FAERS Safety Report 5924974-2 (Version None)
Quarter: 2008Q3

REPORT INFORMATION
  Report Type: 
  Country: None (occurrence: None)
  Receive Date: 20080909
  Receipt Date: 20080403
  Transmission Date: 20090109
  Serious: Yes (Other)
  Sender: FDA-Public Use
  Company Number: 163-20785-08040313

PATIENT
  Age: 57 Year
  Sex: Female
  Weight: 76.2 kg

DRUGS (5)
  1. THALOMID [Suspect]
     Indication: NON-SMALL CELL LUNG CANCER
     Dosage: REDUCED DOSES, QD, ORAL ; 200MG, WKLY TITRATION OF 100MG UP TO 1000MG, QD, ORAL
     Route: 048
     Dates: start: 20060424, end: 20060616
  2. THALOMID [Suspect]
     Indication: NON-SMALL CELL LUNG CANCER
     Dosage: REDUCED DOSES, QD, ORAL ; 200MG, WKLY TITRATION OF 100MG UP TO 1000MG, QD, ORAL
     Route: 048
     Dates: start: 20060403
  3. PACLITAXEL [Suspect]
     Indication: NON-SMALL CELL LUNG CANCER
     Dosage: 225MG/M2 OVER 3 HOURS, ON DAY 1 EVERY 21 DAYS X2, INTRAVENOUS
     Route: 042
     Dates: start: 20060403, end: 20060616
  4. CARBOPLATIN [Suspect]
     Indication: NON-SMALL CELL LUNG CANCER
     Dosage: AUC-6 OVER 15-30MIN, ON DAY 1 EVERY 21 DAYS X2, INTRAVENOUS
     Route: 042
     Dates: start: 20060403, end: 20060616
  5. XRT (THERAPEUTIC RADIOPHARMACEUTICALS) [Suspect]
     Indication: NON-SMALL CELL LUNG CANCER
     Dosage: 60GY, OVER 6 WKS BEGINNING BETWEEN DAYS 43-50, RADIATION
     Dates: start: 20060101, end: 20060101

REACTIONS (1)
  - NEUTROPENIA [None]
